FAERS Safety Report 12157278 (Version 1)
Quarter: 2016Q1

REPORT INFORMATION
  Report Type: Report from Study
  Country: GB (occurrence: GB)
  Receive Date: 20160308
  Receipt Date: 20160308
  Transmission Date: 20160526
  Serious: Yes (Hospitalization)
  Sender: FDA-Public Use
  Company Number: GB-AMGEN-GBRCT2016026921

PATIENT
  Sex: Male

DRUGS (3)
  1. FLUORIDE                           /00168201/ [Concomitant]
     Active Substance: SODIUM FLUORIDE
     Dosage: 125 MBQ, UNK
     Route: 042
     Dates: start: 20160105, end: 20160105
  2. AMIODARONE [Concomitant]
     Active Substance: AMIODARONE
     Dosage: UNK
     Dates: end: 20160128
  3. DENOSUMAB [Suspect]
     Active Substance: DENOSUMAB
     Indication: PRODUCT USED FOR UNKNOWN INDICATION
     Route: 065

REACTIONS (3)
  - Cardiac failure [Recovering/Resolving]
  - Atrial fibrillation [Recovering/Resolving]
  - Aortic stenosis [Recovering/Resolving]

NARRATIVE: CASE EVENT DATE: 201601
